FAERS Safety Report 17410079 (Version 1)
Quarter: 2020Q1

REPORT INFORMATION
  Report Type: Spontaneous
  Country: DE (occurrence: DE)
  Receive Date: 20200212
  Receipt Date: 20200212
  Transmission Date: 20200409
  Serious: Yes (Other)
  Sender: FDA-Public Use
  Company Number: DE-MYLANLABS-2019M1130993

PATIENT
  Age: 1 Day
  Sex: Male
  Weight: 3.23 kg

DRUGS (2)
  1. FOLSAEURE [Concomitant]
     Active Substance: FOLIC ACID
     Indication: PROPHYLAXIS OF NEURAL TUBE DEFECT
     Dosage: UNK
     Route: 064
  2. ARIPIPRAZOLE. [Suspect]
     Active Substance: ARIPIPRAZOLE
     Indication: SCHIZOPHRENIA
     Dosage: 10 [MG/D ]
     Route: 064
     Dates: start: 20181117, end: 20190820

REACTIONS (2)
  - Foetal exposure during pregnancy [Recovered/Resolved]
  - Atrial tachycardia [Recovered/Resolved]
